FAERS Safety Report 26045957 (Version 1)
Quarter: 2025Q4

REPORT INFORMATION
  Report Type: Spontaneous
  Country: EU (occurrence: EU)
  Receive Date: 20251114
  Receipt Date: 20251114
  Transmission Date: 20260117
  Serious: Yes (Other)
  Sender: RANBAXY
  Company Number: EU-MINISAL02-1051095

PATIENT
  Age: 63 Year
  Sex: Male

DRUGS (1)
  1. PANTOPRAZOLE [Suspect]
     Active Substance: PANTOPRAZOLE
     Indication: Haematemesis
     Dosage: UNK
     Route: 065

REACTIONS (1)
  - Lymphangitis [Recovering/Resolving]

NARRATIVE: CASE EVENT DATE: 20250126
